FAERS Safety Report 11720403 (Version 1)
Quarter: 2015Q4

REPORT INFORMATION
  Report Type: Spontaneous
  Country: ES (occurrence: ES)
  Receive Date: 20151110
  Receipt Date: 20151110
  Transmission Date: 20160304
  Serious: Yes (Death)
  Sender: FDA-Public Use
  Company Number: ES-BAYER-2015-459552

PATIENT
  Age: 86 Year
  Sex: Male

DRUGS (5)
  1. SINTROM [Interacting]
     Active Substance: ACENOCOUMAROL
     Indication: DEEP VEIN THROMBOSIS
     Dosage: UNK
     Route: 048
     Dates: start: 20150427, end: 20150628
  2. QUETIAPINE [Concomitant]
     Active Substance: QUETIAPINE
  3. COLCHIMAX [COLCHICINE,DICYCLOVERINE HYDROCHLORIDE] [Concomitant]
     Active Substance: COLCHICINE
  4. EMCONCOR COR [Concomitant]
     Active Substance: BISOPROLOL
  5. ADIRO 300 [Suspect]
     Active Substance: ASPIRIN
     Route: 065
     Dates: start: 2015

REACTIONS (1)
  - Cerebral haemorrhage [Fatal]

NARRATIVE: CASE EVENT DATE: 20150627
